FAERS Safety Report 5436711-9 (Version None)
Quarter: 2007Q3

REPORT INFORMATION
  Report Type: 
  Country: None (occurrence: None)
  Receive Date: 20070831
  Receipt Date: 20070822
  Transmission Date: 20080115
  Serious: Yes (Hospitalization)
  Sender: FDA-Public Use
  Company Number: ZA-JNJFOC-20070804653

PATIENT
  Sex: Female
  Weight: 44 kg

DRUGS (1)
  1. DUROGESIC [Suspect]
     Indication: HEADACHE
     Route: 062

REACTIONS (3)
  - MEDICATION ERROR [None]
  - NAUSEA [None]
  - OFF LABEL USE [None]
